FAERS Safety Report 17807956 (Version 2)
Quarter: 2020Q4

REPORT INFORMATION
  Report Type: Report from Study
  Country: FR (occurrence: FR)
  Receive Date: 20200520
  Receipt Date: 20201012
  Transmission Date: 20210113
  Serious: Yes (Hospitalization)
  Sender: FDA-Public Use
  Company Number: FR-BAYER-2020-090012

PATIENT
  Age: 65 Year
  Sex: Female
  Weight: 66 kg

DRUGS (4)
  1. HEPARIN [Concomitant]
     Active Substance: HEPARIN SODIUM
     Indication: ANTICOAGULANT THERAPY
     Dosage: 25 KILO-INTERNATIONAL UNIT TOTAL DURING SURGERY
     Route: 065
     Dates: start: 20190709, end: 20190709
  2. FRESH FROZEN PLASMA [Concomitant]
     Active Substance: HUMAN PLASMA
     Indication: TRANSFUSION
     Dosage: 554 MILLILITRE TOTAL INTR- AND POST-OPERATIVELY (UP TO 48 HOURS)
     Dates: start: 20190709
  3. APROTININ [Suspect]
     Active Substance: APROTININ
     Indication: MITRAL VALVE REPLACEMENT
     Dosage: 300 MILLILITRE EVERY 1 DAY (S) LOADING DOSE 1 MILLION KIU PUMP PRIMING DOSE 1 MILLION KIU TOTAL CONT
     Route: 065
     Dates: start: 20190709, end: 20190709
  4. LOW MOLECULAR WEIGHT HEPARIN [Concomitant]
     Active Substance: UNSPECIFIED INGREDIENT
     Indication: ANTICOAGULANT THERAPY
     Dosage: UNK
     Route: 065

REACTIONS (3)
  - Product use in unapproved indication [Unknown]
  - Blood creatinine increased [Recovered/Resolved]
  - Off label use [Unknown]

NARRATIVE: CASE EVENT DATE: 20190709
